FAERS Safety Report 7893732-4 (Version None)
Quarter: 2011Q4

REPORT INFORMATION
  Report Type: 
  Country: None (occurrence: None)
  Receive Date: 20111104
  Receipt Date: 20111026
  Transmission Date: 20120403
  Serious: Yes (Hospitalization, Other)
  Sender: FDA-Public Use
  Company Number: PHHY2011SI94377

PATIENT
  Age: 73 Year
  Sex: Female

DRUGS (2)
  1. TRAMADOL HCL [Suspect]
     Indication: PAIN IN EXTREMITY
  2. BROMAZEPAM [Interacting]
     Dosage: UNK

REACTIONS (4)
  - SOMNOLENCE [None]
  - DRUG LEVEL INCREASED [None]
  - DRUG INTERACTION [None]
  - LOSS OF CONSCIOUSNESS [None]
